FAERS Safety Report 26136733 (Version 1)
Quarter: 2025Q4

REPORT INFORMATION
  Report Type: Spontaneous
  Country: KR (occurrence: KR)
  Receive Date: 20251209
  Receipt Date: 20251209
  Transmission Date: 20260117
  Serious: Yes (Hospitalization)
  Sender: BOEHRINGER INGELHEIM
  Company Number: KR-BoehringerIngelheim-2025-BI-111444

PATIENT
  Age: 63 Year
  Sex: Female

DRUGS (1)
  1. OFEV [Suspect]
     Active Substance: NINTEDANIB
     Indication: Pulmonary fibrosis

REACTIONS (13)
  - Cough [Recovering/Resolving]
  - Herpes zoster [Unknown]
  - Spinal fracture [Recovering/Resolving]
  - Condition aggravated [Unknown]
  - Pulmonary fibrosis [Unknown]
  - Pneumonia [Recovering/Resolving]
  - Tracheostomy [Unknown]
  - Musculoskeletal chest pain [Recovering/Resolving]
  - Flank pain [Recovering/Resolving]
  - Decubitus ulcer [Recovering/Resolving]
  - Lung disorder [Unknown]
  - Vertigo positional [Recovering/Resolving]
  - Angina pectoris [Recovering/Resolving]

NARRATIVE: CASE EVENT DATE: 20241101
